FAERS Safety Report 22651312 (Version 1)
Quarter: 2023Q2

REPORT INFORMATION
  Report Type: Report from Study
  Country: FR (occurrence: FR)
  Receive Date: 20230628
  Receipt Date: 20230628
  Transmission Date: 20230722
  Serious: Yes (Other)
  Sender: FDA-Public Use
  Company Number: FR-PFIZER INC-PV202200078489

PATIENT
  Age: 8 Month
  Sex: Male
  Weight: 7 kg

DRUGS (3)
  1. CRIZOTINIB [Suspect]
     Active Substance: CRIZOTINIB
     Indication: Histiocytosis
     Dosage: UNK
     Dates: start: 20221020
  2. CRIZOTINIB [Suspect]
     Active Substance: CRIZOTINIB
     Dosage: 70 MG, 2X/DAY
     Dates: start: 202210
  3. CRIZOTINIB [Suspect]
     Active Substance: CRIZOTINIB
     Dosage: 180 MG/M2
     Dates: start: 20230106

REACTIONS (1)
  - Neutropenia [Recovered/Resolved]

NARRATIVE: CASE EVENT DATE: 20221208
